FAERS Safety Report 6268387-5 (Version None)
Quarter: 2009Q3

REPORT INFORMATION
  Report Type: 
  Country: None (occurrence: None)
  Receive Date: 20090713
  Receipt Date: 20090713
  Transmission Date: 20100115
  Serious: No
  Sender: FDA-Public Use
  Company Number: None

PATIENT
  Age: 45 Year
  Sex: Female
  Weight: 104.3273 kg

DRUGS (1)
  1. ULTRAM [Suspect]
     Indication: PAIN
     Dosage: 50 MG ONCE PO SEVERAL HOURS
     Route: 048

REACTIONS (1)
  - VENTRICULAR EXTRASYSTOLES [None]
